FAERS Safety Report 9163997 (Version 2)
Quarter: 2013Q1

REPORT INFORMATION
  Report Type: Spontaneous
  Country: US (occurrence: US)
  Receive Date: 20130314
  Receipt Date: 20130329
  Transmission Date: 20140127
  Serious: Yes (Death)
  Sender: FDA-Public Use
  Company Number: GXBR2013US000739

PATIENT
  Age: 81 Year
  Sex: Male
  Weight: 107.94 kg

DRUGS (14)
  1. ENOXAPARIN SODIUM [Suspect]
     Indication: DEEP VEIN THROMBOSIS
     Dosage: 150 MG, QD
  2. ASA [Concomitant]
     Dosage: 81 MG, QD
     Route: 048
  3. BACTRIUM DS [Concomitant]
     Dosage: SULFAMETHOXAZOLE 800MG/TRIMETHOPRIM 160MG, BID
     Route: 048
  4. CALCIUM 600+VIT D [Concomitant]
     Dosage: CALCIUM 600/ VIT D 400, QD
     Route: 048
  5. CARDIZEM LA [Concomitant]
     Dosage: 180 MG, QD
     Route: 048
  6. FENTANYL [Concomitant]
     Dosage: 75 UG, UNK
     Route: 062
  7. FOLIC ACID [Concomitant]
     Dosage: 1 MG, UNK
     Route: 048
  8. OLANZAPINE [Concomitant]
     Dosage: 5 MG, QD
     Route: 048
  9. PREDNISOLONE [Concomitant]
     Dosage: 40 MG, QD
     Route: 048
  10. HYDROCODONE W/ACETAMINOPHEN [Concomitant]
     Dosage: HYDROCODONE 5MG/ACETAMINOPHEN 325MG, Q4H PRN
     Route: 048
  11. HYDROMORPHONE [Concomitant]
     Dosage: 2 MG, Q3-6 HOURS PRN
     Route: 048
  12. PROTONIX [Concomitant]
     Dosage: 40 MG, QD
     Route: 048
  13. MULTAQ [Concomitant]
     Dosage: 400 MG, BID
     Route: 048
  14. LANOXIN [Concomitant]
     Dosage: 125 UG, QD
     Route: 048

REACTIONS (1)
  - Lung squamous cell carcinoma stage IV [Fatal]
